FAERS Safety Report 8551015-3 (Version None)
Quarter: 2012Q3

REPORT INFORMATION
  Report Type: 
  Country: None (occurrence: None)
  Receive Date: 20120730
  Receipt Date: 20110829
  Transmission Date: 20120928
  Serious: No
  Sender: FDA-Public Use
  Company Number: US-ALLERGAN-1110979US

PATIENT
  Sex: Female

DRUGS (2)
  1. LATISSE [Suspect]
     Indication: GROWTH OF EYELASHES
     Dosage: 1 GTT, QHS
     Route: 061
     Dates: start: 20100101
  2. VARIOUS OTC EYE DROPS [Concomitant]
     Dosage: UNK
     Route: 047

REACTIONS (4)
  - MADAROSIS [None]
  - FOREIGN BODY SENSATION IN EYES [None]
  - TRICHORRHEXIS [None]
  - OCULAR HYPERAEMIA [None]
